FAERS Safety Report 19641320 (Version 2)
Quarter: 2021Q4

REPORT INFORMATION
  Report Type: Report from Study
  Country: FR (occurrence: FR)
  Receive Date: 20210730
  Receipt Date: 20211005
  Transmission Date: 20220303
  Serious: Yes (Other)
  Sender: FDA-Public Use
  Company Number: FR-ROCHE-2878242

PATIENT
  Age: 54 Year
  Sex: Female

DRUGS (6)
  1. ATEZOLIZUMAB [Suspect]
     Active Substance: ATEZOLIZUMAB
     Indication: Non-small cell lung cancer
     Dosage: 12 CYCLES TOTAL DOSE 14?1200 MILLIGRAM EVERY 1 CYCLE(S) DAY1 OF CYCLE OF 21 DAYS
     Route: 042
     Dates: start: 20201113, end: 20210701
  2. PEMETREXED [Concomitant]
     Active Substance: PEMETREXED
     Dosage: 21 DAY CYCLE
     Dates: start: 20201113
  3. PEMETREXED [Concomitant]
     Active Substance: PEMETREXED
     Dosage: 21 DAY CYCLE
     Dates: end: 20210701
  4. CARBOPLATIN [Concomitant]
     Active Substance: CARBOPLATIN
     Dosage: 21 DAY CYCLE
     Dates: start: 20201113
  5. CARBOPLATIN [Concomitant]
     Active Substance: CARBOPLATIN
     Dosage: 21 DAY CYCLE
     Dates: end: 20210701
  6. METFORMIN [Concomitant]
     Active Substance: METFORMIN HYDROCHLORIDE
     Dosage: 4 CYCLES - TOTAL DOSE 2
     Dates: start: 201905

REACTIONS (1)
  - Nephritis [Recovered/Resolved]

NARRATIVE: CASE EVENT DATE: 20210721
